FAERS Safety Report 9812954 (Version 3)
Quarter: 2014Q1

REPORT INFORMATION
  Report Type: Report from Study
  Country: US (occurrence: US)
  Receive Date: 20140113
  Receipt Date: 20140123
  Transmission Date: 20141002
  Serious: Yes (Hospitalization)
  Sender: FDA-Public Use
  Company Number: US-BAYER-2014-001472

PATIENT
  Age: 81 Year
  Sex: Male

DRUGS (1)
  1. NEXAVAR [Suspect]
     Indication: HEPATIC CANCER
     Dosage: 400 MG, BID
     Route: 048
     Dates: start: 20131230, end: 20140102

REACTIONS (4)
  - Abdominal pain upper [Recovered/Resolved]
  - Rash pruritic [Recovered/Resolved]
  - Nausea [Not Recovered/Not Resolved]
  - Pancreatic disorder [Recovered/Resolved]
